FAERS Safety Report 8651286 (Version 3)
Quarter: 2012Q4

REPORT INFORMATION
  Report Type: 
  Country: US (occurrence: US)
  Receive Date: 20120705
  Receipt Date: 20120917
  Transmission Date: 20130627
  Serious: No
  Sender: FDA-Public Use
  Company Number: US-B.I. PHARMACEUTICALS,INC./RIDGEFIELD-2012-BP-14881BP

PATIENT
  Age: 58 Year
  Sex: Female
  Weight: 72.57 kg

DRUGS (2)
  1. PRADAXA [Suspect]
     Indication: ATRIAL FIBRILLATION
     Dosage: 300 mg
     Route: 048
     Dates: start: 20120508, end: 20120703
  2. METOPROLOL SUCCINATE ER [Concomitant]
     Indication: HYPERTENSION
     Dosage: 12.5 mg
     Route: 048

REACTIONS (1)
  - Pain in extremity [Recovered/Resolved]
